FAERS Safety Report 7416254-3 (Version None)
Quarter: 2011Q2

REPORT INFORMATION
  Report Type: 
  Country: None (occurrence: None)
  Receive Date: 20110414
  Receipt Date: 20110411
  Transmission Date: 20111010
  Serious: Yes (Other)
  Sender: FDA-Public Use
  Company Number: ZA-PFIZER INC-2011078898

PATIENT
  Age: 57 Year
  Sex: Female

DRUGS (5)
  1. LYRICA [Suspect]
     Indication: FIBROMYALGIA
     Dosage: 75 MG, 1X/DAY (NOCTE)
     Route: 048
     Dates: start: 20090101
  2. MELOXICAM [Concomitant]
     Dosage: UNK
     Route: 048
     Dates: start: 20110101
  3. PREMELLE [Concomitant]
     Dosage: UNK
     Route: 048
     Dates: start: 20100101
  4. ADCO-DOL [Concomitant]
     Dosage: PRN (AS NEEDED)
     Route: 048
     Dates: start: 20110101
  5. BISOPROLOL FUMARATE [Concomitant]
     Dosage: UNK
     Route: 048
     Dates: start: 20100101

REACTIONS (1)
  - MENTAL IMPAIRMENT [None]
